FAERS Safety Report 9869665 (Version 2)
Quarter: 2014Q2

REPORT INFORMATION
  Report Type: Spontaneous
  Country: FR (occurrence: None)
  Receive Date: 20140131
  Receipt Date: 20140417
  Transmission Date: 20141212
  Serious: Yes (Life-Threatening, Hospitalization)
  Sender: FDA-Public Use
  Company Number: SYM-2014-15723

PATIENT
  Age: 83 Year
  Sex: Female

DRUGS (9)
  1. FLAGYL [Suspect]
     Indication: DEVICE RELATED INFECTION
     Route: 048
     Dates: start: 201310
  2. IMOVANE [Suspect]
     Dosage: 1 DOSAGE FORMER, DAILY, ORAL
     Route: 048
  3. IZILOX [Suspect]
     Indication: DEVICE RELATED INFECTION
     Dates: start: 201310
  4. TAHOR [Concomitant]
  5. TARDYFERON [Concomitant]
  6. EUPANTOL [Concomitant]
  7. ARIXTRA [Concomitant]
  8. DAFALGAN [Concomitant]
  9. FORLAX [Concomitant]

REACTIONS (9)
  - Leukoencephalopathy [None]
  - Coma [None]
  - Device related infection [None]
  - Hypoglycaemia [None]
  - Epilepsy [None]
  - Fracture [None]
  - Superinfection [None]
  - Bronchitis [None]
  - Respiratory distress [None]
